FAERS Safety Report 4478431-3 (Version None)
Quarter: 2004Q4

REPORT INFORMATION
  Report Type: 
  Country: None (occurrence: None)
  Receive Date: 20041019
  Receipt Date: 20041008
  Transmission Date: 20050328
  Serious: Yes (Hospitalization)
  Sender: FDA-Public Use
  Company Number: FR-JNJFOC-20040902803

PATIENT
  Age: 64 Year
  Sex: Female

DRUGS (2)
  1. RISPERDAL [Suspect]
     Indication: DELUSION
     Route: 049
  2. TERCIAN [Suspect]
     Indication: DELUSION
     Route: 049

REACTIONS (4)
  - DRUG INTERACTION [None]
  - LEUKOPENIA [None]
  - LYMPHOPENIA [None]
  - NEUTROPENIA [None]
